FAERS Safety Report 23827771 (Version 1)
Quarter: 2024Q2

REPORT INFORMATION
  Report Type: Spontaneous
  Country: FR (occurrence: None)
  Receive Date: 20240507
  Receipt Date: 20240507
  Transmission Date: 20240716
  Serious: Yes (Hospitalization)
  Sender: FDA-Public Use
  Company Number: 2024A102345

PATIENT
  Age: 21 Year
  Sex: Female
  Weight: 53 kg

DRUGS (6)
  1. QUETIAPINE [Suspect]
     Active Substance: QUETIAPINE
     Indication: Intentional overdose
     Dosage: 300 MG X 20 CP PRISE UNIQUE20.0DF ONCE/SINGLE ADMINISTRATION
     Route: 048
     Dates: start: 20240312, end: 20240312
  2. DIAZEPAM [Suspect]
     Active Substance: DIAZEPAM
     Indication: Intentional overdose
     Dosage: NR
     Route: 048
     Dates: start: 20240312, end: 20240312
  3. CYAMEMAZINE [Suspect]
     Active Substance: CYAMEMAZINE
     Indication: Intentional overdose
     Dosage: 25 MG X 15 PCS SINGLE DOSE15.0DF ONCE/SINGLE ADMINISTRATION
     Route: 048
     Dates: start: 20240312, end: 20240312
  4. SERTRALINE [Suspect]
     Active Substance: SERTRALINE HYDROCHLORIDE
     Indication: Intentional overdose
     Dosage: 50MG MORNING
  5. SERTRALINE [Suspect]
     Active Substance: SERTRALINE HYDROCHLORIDE
     Indication: Intentional overdose
     Dosage: 25MG MORNING + MIDDAY AND 50MG EVENING
  6. CYAMEMAZINE [Suspect]
     Active Substance: CYAMEMAZINE
     Indication: Intentional overdose
     Dosage: 25MG MORNING + MIDDAY AND 50MG EVENING

REACTIONS (5)
  - Agitation [Recovered/Resolved]
  - Somnolence [Recovered/Resolved]
  - Poisoning deliberate [Recovered/Resolved]
  - Urinary retention [Recovered/Resolved]
  - Mydriasis [Recovered/Resolved]

NARRATIVE: CASE EVENT DATE: 20240312
